FAERS Safety Report 17663669 (Version 1)
Quarter: 2020Q2

REPORT INFORMATION
  Report Type: Spontaneous
  Country: FR (occurrence: FR)
  Receive Date: 20200414
  Receipt Date: 20200414
  Transmission Date: 20200713
  Serious: Yes (Hospitalization, Other)
  Sender: FDA-Public Use
  Company Number: FR-AUROBINDO-AUR-APL-2020-017963

PATIENT
  Age: 58 Year
  Sex: Female
  Weight: 102 kg

DRUGS (2)
  1. OMEPRAZOLE MYLAN [Suspect]
     Active Substance: OMEPRAZOLE
     Indication: OESOPHAGITIS
     Dosage: 1 DOSAGE FORM, ONCE A DAY
     Route: 048
     Dates: start: 20200125
  2. PANTOPRAZOLE [Suspect]
     Active Substance: PANTOPRAZOLE
     Indication: OESOPHAGITIS
     Dosage: 1 DOSAGE FORM, ONCE A DAY
     Route: 048
     Dates: end: 20200124

REACTIONS (3)
  - Hypoparathyroidism secondary [Recovering/Resolving]
  - Hypomagnesaemia [Recovering/Resolving]
  - Partial seizures [Recovered/Resolved]

NARRATIVE: CASE EVENT DATE: 20200124
